FAERS Safety Report 5943633-3 (Version None)
Quarter: 2008Q4

REPORT INFORMATION
  Report Type: 
  Country: None (occurrence: None)
  Receive Date: 20081103
  Receipt Date: 20081103
  Transmission Date: 20090506
  Serious: Yes (Other)
  Sender: FDA-Public Use
  Company Number: FPI-08-TEV-0267

PATIENT
  Sex: Female
  Weight: 45 kg

DRUGS (3)
  1. TEV-TROPIN [Suspect]
     Indication: GROWTH HORMONE DEFICIENCY
     Dosage: 4.5 DAILY, SQ; 2.3 MG, DAILY SQ
     Route: 058
     Dates: start: 20081011, end: 20081019
  2. TEV-TROPIN [Suspect]
     Indication: GROWTH HORMONE DEFICIENCY
     Dosage: 4.5 DAILY, SQ; 2.3 MG, DAILY SQ
     Route: 058
     Dates: start: 20081021
  3. MOTRIN [Concomitant]

REACTIONS (4)
  - ARTHRALGIA [None]
  - OEDEMA PERIPHERAL [None]
  - PAIN [None]
  - SWELLING [None]
